FAERS Safety Report 6805340-4 (Version None)
Quarter: 2010Q2

REPORT INFORMATION
  Report Type: 
  Country: None (occurrence: None)
  Receive Date: 20100628
  Receipt Date: 20071025
  Transmission Date: 20101027
  Serious: No
  Sender: FDA-Public Use
  Company Number: US-PFIZER INC-2007090168

PATIENT
  Sex: Male

DRUGS (1)
  1. SUTENT [Suspect]

REACTIONS (6)
  - CHILLS [None]
  - DECREASED APPETITE [None]
  - DIARRHOEA [None]
  - HAIR COLOUR CHANGES [None]
  - PAIN IN EXTREMITY [None]
  - WEIGHT DECREASED [None]
